FAERS Safety Report 9475957 (Version 1)
Quarter: 2013Q3

REPORT INFORMATION
  Report Type: Spontaneous
  Country: US (occurrence: US)
  Receive Date: 20130826
  Receipt Date: 20130826
  Transmission Date: 20140515
  Serious: Yes (Hospitalization)
  Sender: FDA-Public Use
  Company Number: US-BAYER-2013-102425

PATIENT
  Age: 35 Year
  Sex: Female

DRUGS (3)
  1. YASMIN [Suspect]
  2. ABILIFY [Concomitant]
  3. BENZTROPINE [Concomitant]

REACTIONS (1)
  - Deep vein thrombosis [Recovered/Resolved]
